FAERS Safety Report 4354442-3 (Version None)
Quarter: 2004Q2

REPORT INFORMATION
  Report Type: 
  Country: None (occurrence: None)
  Receive Date: 20040503
  Receipt Date: 20040419
  Transmission Date: 20050107
  Serious: Yes (Hospitalization, Other)
  Sender: FDA-Public Use
  Company Number: 2004003992

PATIENT
  Age: 30 Year
  Sex: Female
  Weight: 51 kg

DRUGS (3)
  1. NEURONTIN [Suspect]
     Indication: NEURALGIA
     Dosage: 300 MG (DAILY), ORAL
     Route: 048
     Dates: start: 20021201
  2. NIMESULIDE (NIMESULIDE) [Concomitant]
  3. ACETAMINOPHEN [Concomitant]

REACTIONS (6)
  - ASTHENIA [None]
  - MUSCLE SPASMS [None]
  - MUSCLE TWITCHING [None]
  - POLLAKIURIA [None]
  - SENSORY LOSS [None]
  - URINARY INCONTINENCE [None]
